FAERS Safety Report 16007058 (Version 2)
Quarter: 2019Q1

REPORT INFORMATION
  Report Type: Spontaneous
  Country: US (occurrence: US)
  Receive Date: 20190224
  Receipt Date: 20190325
  Transmission Date: 20190418
  Serious: No
  Sender: FDA-Public Use
  Company Number: US-ASTRAZENECA-2019SE17536

PATIENT
  Sex: Male

DRUGS (1)
  1. BYDUREON BCISE [Suspect]
     Active Substance: EXENATIDE
     Route: 065

REACTIONS (6)
  - Abdominal pain upper [Unknown]
  - Malaise [Unknown]
  - Needle issue [Unknown]
  - Nausea [Unknown]
  - Device issue [Unknown]
  - Arthritis [Unknown]
